FAERS Safety Report 6283764-4 (Version None)
Quarter: 2009Q3

REPORT INFORMATION
  Report Type: 
  Country: None (occurrence: None)
  Receive Date: 20090724
  Receipt Date: 20070427
  Transmission Date: 20100115
  Serious: Yes (Other)
  Sender: FDA-Public Use
  Company Number: US-ASTRAZENECA-2006UW27471

PATIENT
  Age: 16540 Day
  Sex: Male
  Weight: 119.7 kg

DRUGS (12)
  1. SEROQUEL [Suspect]
     Indication: MENTAL DISORDER
     Dosage: 25-300 MG
     Route: 048
     Dates: start: 19980130
  2. SEROQUEL [Suspect]
     Route: 048
     Dates: start: 19990101, end: 20040101
  3. XANAX [Concomitant]
     Dosage: 1-4 MG
     Route: 048
     Dates: start: 19870717
  4. WELLBUTRIN [Concomitant]
     Dates: start: 19980130
  5. CELEXA [Concomitant]
     Dosage: 20-40 MG
     Route: 048
     Dates: start: 19981214
  6. ZAROXOLYN [Concomitant]
     Indication: OEDEMA PERIPHERAL
     Route: 048
     Dates: start: 19990909
  7. GLUCOPHAGE [Concomitant]
     Dates: start: 19990909
  8. ACCUPRIL [Concomitant]
     Dates: start: 19990909
  9. ULTRAM [Concomitant]
     Route: 048
     Dates: start: 19990909
  10. SYNTHROID [Concomitant]
     Dosage: 112 MCG DAILY
     Route: 048
     Dates: start: 20020415
  11. EFFEXOR [Concomitant]
     Dosage: 37.5-150  MG
     Dates: start: 19980130
  12. GLUCOTROL [Concomitant]
     Dosage: 05-40 MG
     Dates: start: 19990909

REACTIONS (8)
  - DIABETES MELLITUS [None]
  - DIABETES MELLITUS INADEQUATE CONTROL [None]
  - DIABETIC NEUROPATHY [None]
  - HYPERTRIGLYCERIDAEMIA [None]
  - IMPAIRED GASTRIC EMPTYING [None]
  - NEUROPATHY PERIPHERAL [None]
  - TYPE 1 DIABETES MELLITUS [None]
  - TYPE 2 DIABETES MELLITUS [None]
